FAERS Safety Report 14254009 (Version 1)
Quarter: 2017Q4

REPORT INFORMATION
  Report Type: Spontaneous
  Country: DE (occurrence: DE)
  Receive Date: 20171206
  Receipt Date: 20171206
  Transmission Date: 20180321
  Serious: Yes (Other)
  Sender: FDA-Public Use
  Company Number: DE-ACCORD-061662

PATIENT
  Age: 52 Year
  Sex: Female

DRUGS (4)
  1. PREDNISOLONE. [Suspect]
     Active Substance: PREDNISOLONE
     Indication: PEMPHIGUS
  2. PREDNISOLONE. [Suspect]
     Active Substance: PREDNISOLONE
     Indication: PEMPHIGUS
     Dosage: THEN TO 80 MG/DAY AND THEN TO 20 MG/DAY
  3. MYCOPHENOLIC ACID. [Suspect]
     Active Substance: MYCOPHENOLIC ACID
     Indication: PEMPHIGUS
     Dosage: HIGH-DOSE CORTICOSTEROID
  4. PREDNISOLONE. [Suspect]
     Active Substance: PREDNISOLONE
     Indication: PEMPHIGUS
     Dosage: 2 MG/KG BODY WEIGHT

REACTIONS (6)
  - Atypical pneumonia [Recovering/Resolving]
  - Off label use [Unknown]
  - Varicella zoster virus infection [Recovering/Resolving]
  - Cytomegalovirus infection [Recovering/Resolving]
  - Pemphigus [Recovering/Resolving]
  - Herpes simplex [Recovering/Resolving]
